FAERS Safety Report 16419559 (Version 1)
Quarter: 2019Q2

REPORT INFORMATION
  Report Type: Spontaneous
  Country: GB (occurrence: GB)
  Receive Date: 20190612
  Receipt Date: 20190612
  Transmission Date: 20190711
  Serious: Yes (Other)
  Sender: FDA-Public Use
  Company Number: GB-AUROBINDO-AUR-APL-2019-032571

PATIENT

DRUGS (3)
  1. ELLESTE DUET [Concomitant]
     Active Substance: ESTRADIOL\NORETHINDRONE ACETATE
     Indication: HORMONE REPLACEMENT THERAPY
     Dosage: 5 MILLIGRAM, EVERY WEEK
     Route: 065
  2. DEPAKOTE [Suspect]
     Active Substance: DIVALPROEX SODIUM
     Indication: EUPHORIC MOOD
     Dosage: 750 MILLIGRAM, DAILY
     Route: 048
     Dates: start: 20160213
  3. ARIPIPRAZOLE. [Suspect]
     Active Substance: ARIPIPRAZOLE
     Indication: PRODUCT USED FOR UNKNOWN INDICATION
     Dosage: 10 MILLIGRAM, DAILY (TO REPLACE DEPAKOTE?)
     Route: 048
     Dates: start: 20190329

REACTIONS (5)
  - Disturbance in attention [Not Recovered/Not Resolved]
  - Vision blurred [Unknown]
  - Gingival disorder [Not Recovered/Not Resolved]
  - Diarrhoea [Not Recovered/Not Resolved]
  - Tooth disorder [Not Recovered/Not Resolved]

NARRATIVE: CASE EVENT DATE: 20160218
